FAERS Safety Report 7521260-4 (Version None)
Quarter: 2011Q2

REPORT INFORMATION
  Report Type: 
  Country: None (occurrence: None)
  Receive Date: 20110603
  Receipt Date: 20101216
  Transmission Date: 20111010
  Serious: Yes (Death, Hospitalization)
  Sender: FDA-Public Use
  Company Number: JP-BAYER-200915298BYL

PATIENT
  Age: 75 Year
  Sex: Male

DRUGS (6)
  1. NEXAVAR [Suspect]
     Indication: HEPATIC NEOPLASM MALIGNANT
     Dosage: 800 MG (DAILY DOSE), , ORAL
     Route: 048
     Dates: start: 20091016, end: 20091214
  2. URSO 250 [Concomitant]
     Indication: PROPHYLAXIS
     Dosage: SINCE BEFORE ADMINISTRATION
     Route: 048
  3. CISPLATIN [Concomitant]
     Indication: HEPATIC ARTERY EMBOLISM
     Dosage: 50 MG (DAILY DOSE), , INTRAVENOUS
     Route: 042
     Dates: start: 20090918, end: 20090918
  4. NEUER [Concomitant]
     Indication: GASTRIC DISORDER
     Dosage: SINCE BEFORE ADMINISTRATION
     Route: 048
  5. LANSOPRAZOLE [Concomitant]
     Indication: GASTRIC DISORDER
     Dosage: SINCE BEFORE ADMINISTRATION
     Route: 048
  6. SEVEN E.P [Concomitant]
     Indication: GASTRIC DISORDER
     Dosage: SINCE BEFORE ADMINISTRATION
     Route: 048

REACTIONS (4)
  - PLEURAL EFFUSION [None]
  - HEPATIC NEOPLASM MALIGNANT [None]
  - ASCITES [None]
  - ALOPECIA [None]
